FAERS Safety Report 19143293 (Version 3)
Quarter: 2022Q1

REPORT INFORMATION
  Report Type: Report from Study
  Country: FR (occurrence: None)
  Receive Date: 20210416
  Receipt Date: 20220321
  Transmission Date: 20220423
  Serious: Yes (Life-Threatening, Other)
  Sender: FDA-Public Use
  Company Number: FR-ROCHE-2810944

PATIENT
  Age: 48 Year
  Sex: Female

DRUGS (4)
  1. TOCILIZUMAB [Suspect]
     Active Substance: TOCILIZUMAB
     Indication: COVID-19
     Dosage: STRENGTH: 20 MG/ML
     Route: 042
     Dates: start: 20210325, end: 20210325
  2. TOCILIZUMAB [Suspect]
     Active Substance: TOCILIZUMAB
     Dosage: STRENGTH: 20 MG/ML
     Route: 042
     Dates: start: 20210327, end: 20210327
  3. DEXAMETHASONE [Suspect]
     Active Substance: DEXAMETHASONE
     Indication: COVID-19
     Dosage: STRENGTH: 4 MG/ML
     Route: 042
     Dates: start: 20210326, end: 20210328
  4. DEXAMETHASONE [Suspect]
     Active Substance: DEXAMETHASONE
     Dosage: STRENGTH: 4 MG/ML
     Route: 042
     Dates: start: 20210330, end: 20210331

REACTIONS (2)
  - Alpha haemolytic streptococcal infection [Recovered/Resolved]
  - Hypertriglyceridaemia [Recovering/Resolving]

NARRATIVE: CASE EVENT DATE: 20210328
